FAERS Safety Report 22235178 (Version 1)
Quarter: 2023Q2

REPORT INFORMATION
  Report Type: Spontaneous
  Country: CN (occurrence: CN)
  Receive Date: 20230420
  Receipt Date: 20230420
  Transmission Date: 20230721
  Serious: Yes (Other)
  Sender: FDA-Public Use
  Company Number: CN-SUN PHARMACEUTICAL INDUSTRIES LTD-2023R1-385864

PATIENT
  Age: 60 Year
  Sex: Female

DRUGS (3)
  1. OXALIPLATIN [Suspect]
     Active Substance: OXALIPLATIN
     Indication: Salvage therapy
     Dosage: 85 MILLIGRAM/SQ. METER
     Route: 065
     Dates: start: 202010, end: 202012
  2. BEVACIZUMAB [Suspect]
     Active Substance: BEVACIZUMAB
     Indication: Salvage therapy
     Dosage: 5 MILLIGRAM/KILOGRAM
     Route: 065
     Dates: start: 202010, end: 202012
  3. RALTITREXED [Suspect]
     Active Substance: RALTITREXED
     Indication: Salvage therapy
     Dosage: 3 MILLIGRAM/SQ. METER EVERY 14 DAYS
     Route: 065

REACTIONS (1)
  - Disease progression [Unknown]
